FAERS Safety Report 4725122-7 (Version None)
Quarter: 2005Q3

REPORT INFORMATION
  Report Type: 
  Country: None (occurrence: None)
  Receive Date: 20050726
  Receipt Date: 20050719
  Transmission Date: 20060218
  Serious: Yes (Hospitalization, Other)
  Sender: FDA-Public Use
  Company Number: US-ABBOTT-05P-163-0306112-00

PATIENT
  Sex: Male
  Weight: 53.118 kg

DRUGS (4)
  1. HUMIRA [Suspect]
     Indication: RHEUMATOID ARTHRITIS
     Route: 058
     Dates: start: 20040601
  2. METHOTREXATE [Concomitant]
     Indication: RHEUMATOID ARTHRITIS
     Route: 048
     Dates: start: 20030801
  3. GLIBENCLAMIDE [Concomitant]
     Indication: DIABETES MELLITUS
     Route: 048
     Dates: start: 19980101
  4. ACTOS [Concomitant]
     Indication: DIABETES MELLITUS
     Route: 048
     Dates: start: 20050701

REACTIONS (3)
  - FALL [None]
  - FOOT FRACTURE [None]
  - RIB FRACTURE [None]
